FAERS Safety Report 21207219 (Version 2)
Quarter: 2023Q2

REPORT INFORMATION
  Report Type: Spontaneous
  Country: US (occurrence: US)
  Receive Date: 20220812
  Receipt Date: 20230519
  Transmission Date: 20230722
  Serious: Yes (Hospitalization)
  Sender: FDA-Public Use
  Company Number: US-PFIZER INC-PV202200038091

PATIENT
  Age: 14 Year
  Sex: Male

DRUGS (6)
  1. DOBUTAMINE HYDROCHLORIDE [Suspect]
     Active Substance: DOBUTAMINE HYDROCHLORIDE
     Indication: Heart transplant
     Dosage: 5 UG/KG/MINUTE
  2. DOBUTAMINE HYDROCHLORIDE [Suspect]
     Active Substance: DOBUTAMINE HYDROCHLORIDE
     Indication: Coronary artery disease
     Dosage: 10 UG/KG/MINUTE
  3. DOBUTAMINE HYDROCHLORIDE [Suspect]
     Active Substance: DOBUTAMINE HYDROCHLORIDE
     Dosage: 20 UG/KG/MINUTE
  4. DOBUTAMINE HYDROCHLORIDE [Suspect]
     Active Substance: DOBUTAMINE HYDROCHLORIDE
     Dosage: 30 UG/KG/MINUTE
  5. DOBUTAMINE HYDROCHLORIDE [Suspect]
     Active Substance: DOBUTAMINE HYDROCHLORIDE
     Dosage: 40 UG/KG/MINUTE
  6. ATROPINE [Concomitant]
     Active Substance: ATROPINE
     Indication: Heart rate
     Dosage: 2 MG

REACTIONS (1)
  - Stress cardiomyopathy [Recovering/Resolving]
